APPROVED DRUG PRODUCT: COLESEVELAM HYDROCHLORIDE
Active Ingredient: COLESEVELAM HYDROCHLORIDE
Strength: 3.75GM/PACKET
Dosage Form/Route: FOR SUSPENSION;ORAL
Application: A210316 | Product #001 | TE Code: AB
Applicant: ALKEM LABORATORIES LTD
Approved: May 6, 2019 | RLD: No | RS: No | Type: RX